FAERS Safety Report 6654147-X (Version None)
Quarter: 2010Q1

REPORT INFORMATION
  Report Type: 
  Country: None (occurrence: None)
  Receive Date: 20100326
  Receipt Date: 20100315
  Transmission Date: 20100710
  Serious: Yes (Other)
  Sender: FDA-Public Use
  Company Number: FR-PFIZER INC-2010023277

PATIENT
  Age: 70 Year
  Sex: Male
  Weight: 45 kg

DRUGS (1)
  1. ZYVOXID [Suspect]
     Dosage: UNK
     Route: 048

REACTIONS (3)
  - ANAEMIA [None]
  - FAECES DISCOLOURED [None]
  - THROMBOCYTOPENIA [None]
